FAERS Safety Report 7743180-2 (Version None)
Quarter: 2011Q3

REPORT INFORMATION
  Report Type: 
  Country: None (occurrence: None)
  Receive Date: 20110912
  Receipt Date: 20110907
  Transmission Date: 20111222
  Serious: Yes (Hospitalization)
  Sender: FDA-Public Use
  Company Number: FR-ROCHE-801397

PATIENT
  Sex: Female

DRUGS (3)
  1. BACTRIM [Suspect]
     Route: 065
  2. VALGANCICLOVIR [Suspect]
     Route: 065
  3. CELLCEPT [Suspect]
     Route: 065

REACTIONS (1)
  - AGRANULOCYTOSIS [None]
